FAERS Safety Report 4339216-1 (Version None)
Quarter: 2004Q2

REPORT INFORMATION
  Report Type: 
  Country: None (occurrence: None)
  Receive Date: 20040412
  Receipt Date: 20040329
  Transmission Date: 20050107
  Serious: Yes (Hospitalization)
  Sender: FDA-Public Use
  Company Number: 2004030020

PATIENT
  Age: 30 Year
  Sex: Male

DRUGS (1)
  1. SOMA [Suspect]
     Indication: MYALGIA
     Dosage: 350 MG TAB X4 DAILY, PO
     Route: 048

REACTIONS (2)
  - CONVULSION [None]
  - MEDICATION ERROR [None]
